FAERS Safety Report 12413298 (Version 2)
Quarter: 2016Q2

REPORT INFORMATION
  Report Type: Report from Study
  Country: US (occurrence: US)
  Receive Date: 20160527
  Receipt Date: 20160614
  Transmission Date: 20160815
  Serious: No
  Sender: FDA-Public Use
  Company Number: US-ASTRAZENECA-2016SE53603

PATIENT
  Age: 805 Month
  Sex: Male
  Weight: 81.6 kg

DRUGS (3)
  1. SYMBICORT [Suspect]
     Active Substance: BUDESONIDE\FORMOTEROL FUMARATE DIHYDRATE
     Indication: CHRONIC OBSTRUCTIVE PULMONARY DISEASE
     Dosage: 160-4.5 MCG,2 PUFFS,TWICE A DAY
     Route: 055
     Dates: start: 2010
  2. PROAIR HFA [Concomitant]
     Active Substance: ALBUTEROL SULFATE
     Indication: DYSPNOEA
     Dosage: AS REQUIRED
     Route: 055
  3. ALBUTEROL. [Concomitant]
     Active Substance: ALBUTEROL
     Indication: DYSPNOEA
     Dosage: 2.5 MG,AS REQUIRED
     Route: 055

REACTIONS (3)
  - Pneumonia [Unknown]
  - Drug dose omission [Unknown]
  - Dyspnoea [Unknown]

NARRATIVE: CASE EVENT DATE: 201603
